FAERS Safety Report 7595586-2 (Version None)
Quarter: 2011Q3

REPORT INFORMATION
  Report Type: 
  Country: None (occurrence: None)
  Receive Date: 20110707
  Receipt Date: 20110628
  Transmission Date: 20111222
  Serious: Yes (Hospitalization)
  Sender: FDA-Public Use
  Company Number: NZ-GLAXOSMITHKLINE-A0935024A

PATIENT
  Age: 12 Year
  Sex: Female
  Weight: 41 kg

DRUGS (8)
  1. METHOTREXATE [Suspect]
     Indication: T-CELL TYPE ACUTE LEUKAEMIA
     Route: 037
  2. CYTARABINE [Suspect]
     Indication: T-CELL TYPE ACUTE LEUKAEMIA
     Dosage: 75MGM2 CYCLIC
     Route: 042
  3. CYCLOPHOSPHAMIDE [Suspect]
     Indication: T-CELL TYPE ACUTE LEUKAEMIA
     Dosage: 1000MGM2 CYCLIC
     Route: 042
  4. NELARABINE [Suspect]
     Indication: T-CELL TYPE ACUTE LEUKAEMIA
     Dosage: 650MGM2 CYCLIC
     Route: 042
     Dates: start: 20110218, end: 20110513
  5. MERCAPTOPURINE [Suspect]
     Indication: T-CELL TYPE ACUTE LEUKAEMIA
     Dosage: 60MGM2 CYCLIC
     Route: 048
  6. PEG-ASPARAGINASE [Suspect]
     Indication: T-CELL TYPE ACUTE LEUKAEMIA
     Route: 030
  7. RADIATION [Suspect]
     Indication: T-CELL TYPE ACUTE LEUKAEMIA
     Route: 061
  8. VINCRISTINE [Suspect]
     Indication: T-CELL TYPE ACUTE LEUKAEMIA
     Dosage: 1.5MGM2 CYCLIC
     Route: 042

REACTIONS (3)
  - HEPATIC STEATOSIS [None]
  - WEIGHT DECREASED [None]
  - DECREASED APPETITE [None]
